FAERS Safety Report 7300118-X (Version None)
Quarter: 2011Q1

REPORT INFORMATION
  Report Type: 
  Country: None (occurrence: None)
  Receive Date: 20110217
  Receipt Date: 20110208
  Transmission Date: 20110831
  Serious: Yes (Hospitalization)
  Sender: FDA-Public Use
  Company Number: US-BIOGENIDEC-2010BI011953

PATIENT
  Age: 62 Year
  Sex: Female

DRUGS (2)
  1. TYSABRI [Suspect]
     Route: 042
     Dates: start: 20101011
  2. TYSABRI [Suspect]
     Indication: MULTIPLE SCLEROSIS
     Route: 042
     Dates: start: 20061009, end: 20100104

REACTIONS (9)
  - PNEUMONIA [None]
  - LOCALISED INFECTION [None]
  - FUNGAL INFECTION [None]
  - FOOT FRACTURE [None]
  - BACTERIAL INFECTION [None]
  - CATHETER PLACEMENT [None]
  - OSTEOMYELITIS [None]
  - RASH [None]
  - PERONEAL NERVE PALSY [None]
